FAERS Safety Report 13544546 (Version 1)
Quarter: 2017Q2

REPORT INFORMATION
  Report Type: Report from Study
  Country: DE (occurrence: DE)
  Receive Date: 20170515
  Receipt Date: 20170515
  Transmission Date: 20170830
  Serious: Yes (Other)
  Sender: FDA-Public Use
  Company Number: PHHY2017DE048108

PATIENT
  Sex: Female
  Weight: 60 kg

DRUGS (14)
  1. COSENTYX [Suspect]
     Active Substance: SECUKINUMAB
     Dosage: 150 MG, (ONCE PER APPLICATION)
     Route: 065
     Dates: start: 20161003, end: 20161003
  2. FOLIC ACID. [Concomitant]
     Active Substance: FOLIC ACID
     Indication: PROPHYLAXIS
     Dosage: 5 MG, QD (1 DAY AFTER MTX)
     Route: 048
     Dates: start: 20101004
  3. PREDNISOLONE. [Concomitant]
     Active Substance: PREDNISOLONE
     Dosage: 15 MG, QD
     Route: 048
     Dates: start: 20170320
  4. COSENTYX [Suspect]
     Active Substance: SECUKINUMAB
     Dosage: 150 MG, (ONCE PER APPLICATION)
     Route: 065
     Dates: start: 20160829
  5. PREDNISOLONE. [Concomitant]
     Active Substance: PREDNISOLONE
     Indication: PSORIATIC ARTHROPATHY
     Dosage: 5 MG, BID (1-0-1)
     Route: 048
     Dates: start: 20170131
  6. VALSARTAN. [Concomitant]
     Active Substance: VALSARTAN
     Indication: ESSENTIAL HYPERTENSION
     Dosage: 120 MG, QD
     Route: 048
  7. IBUHEXAL [Concomitant]
     Active Substance: IBUPROFEN
     Indication: ARTHRALGIA
     Dosage: 600 MG (14 DAYS 3 X 1/2 THEN CONTINUED AS NEEDED)
     Route: 048
     Dates: start: 20160829
  8. COSENTYX [Suspect]
     Active Substance: SECUKINUMAB
     Indication: PSORIATIC ARTHROPATHY
     Dosage: 150 MG, (ONCE PER APPLICATION)
     Route: 065
     Dates: start: 20160801
  9. COSENTYX [Suspect]
     Active Substance: SECUKINUMAB
     Dosage: 150 MG, (ONCE PER APPLICATION)
     Route: 065
     Dates: start: 20160808
  10. COSENTYX [Suspect]
     Active Substance: SECUKINUMAB
     Dosage: 150 MG, (ONCE PER APPLICATION)
     Route: 065
     Dates: start: 20160822
  11. CELECOXIB. [Concomitant]
     Active Substance: CELECOXIB
     Indication: ARTHRALGIA
     Dosage: 200 MG, PRN
     Route: 048
     Dates: start: 20170131
  12. COSENTYX [Suspect]
     Active Substance: SECUKINUMAB
     Dosage: 150 MG, (ONCE PER APPLICATION)
     Route: 065
     Dates: start: 20160905
  13. METHOTREXATE. [Concomitant]
     Active Substance: METHOTREXATE
     Indication: PSORIATIC ARTHROPATHY
     Dosage: 10 MG, QW
     Route: 048
     Dates: start: 20021219, end: 20161003
  14. COSENTYX [Suspect]
     Active Substance: SECUKINUMAB
     Dosage: 150 MG, (ONCE PER APPLICATION)
     Route: 065
     Dates: start: 20160815

REACTIONS (2)
  - Respiratory tract infection [Recovering/Resolving]
  - Paronychia [Recovering/Resolving]

NARRATIVE: CASE EVENT DATE: 20161107
